FAERS Safety Report 7769085-9 (Version None)
Quarter: 2011Q3

REPORT INFORMATION
  Report Type: 
  Country: None (occurrence: None)
  Receive Date: 20110922
  Receipt Date: 20100106
  Transmission Date: 20111222
  Serious: No
  Sender: FDA-Public Use
  Company Number: US-ASTRAZENECA-2009UW19839

PATIENT
  Age: 41 Year
  Sex: Male
  Weight: 122 kg

DRUGS (12)
  1. KLOR-CON M20/K-DUR [Concomitant]
     Dosage: 20
     Dates: start: 20020227
  2. LEXAPRO [Concomitant]
     Dates: start: 20031120
  3. ZYPREXA/SYMBYAX [Concomitant]
     Dates: start: 20020101
  4. ZOLOFT [Concomitant]
     Dosage: 25 MG FOR WEEK THEN 50 MGS FOR A COUPLE OF WEEK
     Dates: start: 20000515
  5. LOPID [Concomitant]
     Dates: start: 19990917
  6. ADALAT CC [Concomitant]
     Dates: start: 20000515
  7. SEROQUEL [Suspect]
     Route: 048
     Dates: start: 20000101
  8. WELLBUTRIN [Concomitant]
     Dates: start: 20020314
  9. XENICAL [Concomitant]
  10. SEROQUEL [Suspect]
     Route: 048
     Dates: start: 20021004
  11. SEROQUEL [Suspect]
     Indication: MENTAL DISORDER
     Dosage: 25-200 MG
     Route: 048
     Dates: start: 20020111
  12. ACCUPRIL [Concomitant]
     Dates: start: 20000515

REACTIONS (4)
  - BLOOD CHOLESTEROL INCREASED [None]
  - MENTAL DISORDER [None]
  - TYPE 2 DIABETES MELLITUS [None]
  - HYPERLIPIDAEMIA [None]
